FAERS Safety Report 5645842-X (Version None)
Quarter: 2008Q1

REPORT INFORMATION
  Report Type: 
  Country: None (occurrence: None)
  Receive Date: 20080229
  Receipt Date: 20080218
  Transmission Date: 20080703
  Serious: Yes (Death)
  Sender: FDA-Public Use
  Company Number: AT-BAYER-AT-2006-033539

PATIENT
  Age: 74 Year
  Sex: Male

DRUGS (6)
  1. CAMPATH [Suspect]
     Indication: CHRONIC LYMPHOCYTIC LEUKAEMIA
     Dosage: UNIT DOSE: 3 MG
     Dates: start: 20030527, end: 20030527
  2. CAMPATH [Suspect]
     Dosage: UNIT DOSE: 10 MG
     Dates: start: 20030528, end: 20030528
  3. CAMPATH [Suspect]
     Dosage: UNIT DOSE: 30 MG
     Dates: start: 20030529, end: 20030529
  4. CAMPATH [Suspect]
     Dosage: UNIT DOSE: 30 MG
     Dates: start: 20030530, end: 20030619
  5. VALACYCLOVIR [Concomitant]
     Indication: INFECTION PROPHYLAXIS
     Route: 065
  6. SULFAMETHOXAZOLE AND TRIMETHOPRIM [Concomitant]
     Indication: INFECTION PROPHYLAXIS
     Route: 065

REACTIONS (3)
  - CARDIAC FAILURE [None]
  - CARDIOPULMONARY FAILURE [None]
  - PLEURAL EFFUSION [None]
